FAERS Safety Report 16747887 (Version 1)
Quarter: 2019Q3

REPORT INFORMATION
  Report Type: Report from Study
  Country: IT (occurrence: IT)
  Receive Date: 20190827
  Receipt Date: 20190827
  Transmission Date: 20191005
  Serious: Yes (Death)
  Sender: FDA-Public Use
  Company Number: IT-JNJFOC-20190826022

PATIENT

DRUGS (4)
  1. DACARBAZINE. [Suspect]
     Active Substance: DACARBAZINE
     Indication: HODGKIN^S DISEASE
     Dosage: USED AT THE SAME DOSES OF CONVENTIONAL ABVD BUT WAS ADMINISTERED ON DAYS 1 AND 8 EVERY 3 WEEKS INSTE
     Route: 065
  2. DOXORUBICIN HYDROCHLORIDE. [Suspect]
     Active Substance: DOXORUBICIN HYDROCHLORIDE
     Indication: HODGKIN^S DISEASE
     Dosage: USED AT THE SAME DOSES OF CONVENTIONAL ABVD BUT WAS ADMINISTERED ON DAYS 1 AND 8 EVERY 3 WEEKS INSTE
     Route: 065
  3. BLEOMYCIN [Suspect]
     Active Substance: BLEOMYCIN SULFATE
     Indication: HODGKIN^S DISEASE
     Dosage: USED AT THE SAME DOSES OF CONVENTIONAL ABVD BUT WAS ADMINISTERED ON DAYS 1 AND 8 EVERY 3 WEEKS INSTE
     Route: 065
  4. VINBLASTINE [Suspect]
     Active Substance: VINBLASTINE
     Indication: HODGKIN^S DISEASE
     Dosage: USED AT THE SAME DOSES OF CONVENTIONAL ABVD BUT WAS ADMINISTERED ON DAYS 1 AND 8 EVERY 3 WEEKS INSTE
     Route: 065

REACTIONS (3)
  - Toxicity to various agents [Fatal]
  - Off label use [Unknown]
  - Product use in unapproved indication [Unknown]
